FAERS Safety Report 8913728 (Version 2)
Quarter: 2012Q4

REPORT INFORMATION
  Report Type: 
  Country: SE (occurrence: SE)
  Receive Date: 20121119
  Receipt Date: 20121212
  Transmission Date: 20130627
  Serious: Yes (Hospitalization, Other)
  Sender: FDA-Public Use
  Company Number: SE-JNJFOC-20121106103

PATIENT
  Age: 78 Year
  Sex: Female

DRUGS (8)
  1. XARELTO [Suspect]
     Indication: THROMBOSIS PROPHYLAXIS
     Route: 048
     Dates: start: 20120911, end: 20120920
  2. XARELTO [Suspect]
     Indication: KNEE ARTHROPLASTY
     Route: 048
     Dates: start: 20120911, end: 20120920
  3. TROMBYL [Interacting]
     Indication: PRODUCT USED FOR UNKNOWN INDICATION
     Route: 048
     Dates: end: 20120920
  4. NAPROXEN SODIUM [Interacting]
     Indication: PAIN MANAGEMENT
     Route: 065
     Dates: start: 20120911, end: 20120915
  5. METOPROLOL [Concomitant]
     Route: 065
  6. RAMIPRIL [Concomitant]
     Route: 065
  7. DOLCONTIN [Concomitant]
     Route: 065
  8. LIPITOR [Concomitant]
     Route: 065

REACTIONS (4)
  - Gastric ulcer [Recovered/Resolved]
  - Upper gastrointestinal haemorrhage [Unknown]
  - Renal failure [Recovered/Resolved]
  - Drug interaction [Unknown]
